FAERS Safety Report 9121271 (Version 2)
Quarter: 2013Q1

REPORT INFORMATION
  Report Type: Spontaneous
  Country: BE (occurrence: BE)
  Receive Date: 20130225
  Receipt Date: 20130301
  Transmission Date: 20140127
  Serious: Yes (Death, Hospitalization, Other)
  Sender: FDA-Public Use
  Company Number: BE-PFIZER INC-2013063848

PATIENT
  Age: 38 Year
  Sex: Female

DRUGS (2)
  1. VENLAFAXINE [Suspect]
     Dosage: 4200 MG, UNK
  2. ETHANOL [Concomitant]
     Dosage: UNK

REACTIONS (21)
  - Overdose [Fatal]
  - Hypoxia [Fatal]
  - Serotonin syndrome [Unknown]
  - Arrhythmia [Unknown]
  - Rhabdomyolysis [Unknown]
  - Atrial fibrillation [Unknown]
  - Ventricular tachycardia [Unknown]
  - Coma scale abnormal [Unknown]
  - Hypotension [Unknown]
  - Clonus [Unknown]
  - Renal failure acute [Unknown]
  - Liver injury [Unknown]
  - Coagulopathy [Unknown]
  - Troponin I increased [Unknown]
  - Ejection fraction decreased [Unknown]
  - Pneumococcal sepsis [Unknown]
  - Pneumonia [Unknown]
  - Acute respiratory distress syndrome [Unknown]
  - Continuous haemodiafiltration [None]
  - Hepatic ischaemia [None]
  - Hepatocellular injury [None]
